FAERS Safety Report 20004146 (Version 1)
Quarter: 2021Q4

REPORT INFORMATION
  Report Type: Spontaneous
  Country: US (occurrence: US)
  Receive Date: 20211027
  Receipt Date: 20211027
  Transmission Date: 20220303
  Serious: Yes (Life-Threatening)
  Sender: FDA-Public Use
  Company Number: None

PATIENT
  Age: 67 Year
  Sex: Male
  Weight: 92.53 kg

DRUGS (1)
  1. SUCCINYLCHOLINE CHLORIDE [Suspect]
     Active Substance: SUCCINYLCHOLINE CHLORIDE
     Indication: Surgery
     Route: 042
     Dates: start: 20210407, end: 20210407

REACTIONS (3)
  - Atrial fibrillation [None]
  - Cardiac arrest [None]
  - Palpitations [None]

NARRATIVE: CASE EVENT DATE: 20210407
